FAERS Safety Report 4279410-1 (Version None)
Quarter: 2004Q1

REPORT INFORMATION
  Report Type: 
  Country: None (occurrence: None)
  Receive Date: 20040127
  Receipt Date: 20030827
  Transmission Date: 20041129
  Serious: No
  Sender: FDA-Public Use
  Company Number: US-BRISTOL-MYERS SQUIBB COMPANY-12367223

PATIENT
  Sex: Female

DRUGS (3)
  1. DOVONEX [Suspect]
     Indication: PSORIASIS
     Dosage: DURATION: 4 TO 6 YEARS
     Route: 061
  2. BLOOD PRESSURE MEDICATION [Concomitant]
  3. MULTIVITAMIN [Concomitant]

REACTIONS (1)
  - BURNING SENSATION [None]
